FAERS Safety Report 6410116-6 (Version None)
Quarter: 2009Q4

REPORT INFORMATION
  Report Type: 
  Country: None (occurrence: None)
  Receive Date: 20091022
  Receipt Date: 20091014
  Transmission Date: 20100525
  Serious: Yes (Death, Hospitalization)
  Sender: FDA-Public Use
  Company Number: CN-AVENTIS-200921205GDDC

PATIENT
  Age: 47 Year
  Sex: Male
  Weight: 50.5 kg

DRUGS (6)
  1. DOCETAXEL [Suspect]
     Route: 042
     Dates: start: 20090922, end: 20090922
  2. CISPLATIN [Suspect]
     Route: 042
     Dates: start: 20090922, end: 20090922
  3. 5-FU                               /00098801/ [Suspect]
     Route: 042
     Dates: start: 20090922, end: 20090927
  4. DEXAMETHASONE [Concomitant]
     Dates: start: 20090921, end: 20090924
  5. OMEPRAZOLE SODIUM [Concomitant]
     Route: 030
     Dates: start: 20090922, end: 20091005
  6. CIPROFLOXACIN HYDROCHLORIDE [Concomitant]
     Dates: start: 20090926

REACTIONS (1)
  - MYELODYSPLASTIC SYNDROME [None]
